FAERS Safety Report 13748709 (Version 1)
Quarter: 2017Q3

REPORT INFORMATION
  Report Type: Spontaneous
  Country: US (occurrence: US)
  Receive Date: 20170712
  Receipt Date: 20170712
  Transmission Date: 20171127
  Serious: Yes (Death)
  Sender: FDA-Public Use
  Company Number: None

PATIENT
  Age: 78 Year
  Sex: Female

DRUGS (1)
  1. REVLIMID [Suspect]
     Active Substance: LENALIDOMIDE
     Indication: PLASMA CELL MYELOMA
     Route: 048
     Dates: start: 20150205, end: 20150213

REACTIONS (5)
  - Hypotension [None]
  - Multiple organ dysfunction syndrome [None]
  - Amyloidosis [None]
  - Acute kidney injury [None]
  - Metabolic encephalopathy [None]

NARRATIVE: CASE EVENT DATE: 20150214
